FAERS Safety Report 26130511 (Version 1)
Quarter: 2025Q4

REPORT INFORMATION
  Report Type: Spontaneous
  Country: GB (occurrence: GB)
  Receive Date: 20251208
  Receipt Date: 20251208
  Transmission Date: 20260117
  Serious: Yes (Other)
  Sender: MYLAN
  Company Number: None

PATIENT
  Age: 80 Year
  Sex: Male
  Weight: 111 kg

DRUGS (48)
  1. ATORVASTATIN [Suspect]
     Active Substance: ATORVASTATIN
     Indication: Ill-defined disorder
     Dosage: 20 MILLIGRAM, PM (TAKE ONE DAILY IN THE EVENING TO LOWER CHOLESTEROL)
     Dates: start: 20251003
  2. ATORVASTATIN [Suspect]
     Active Substance: ATORVASTATIN
     Dosage: 20 MILLIGRAM, PM (TAKE ONE DAILY IN THE EVENING TO LOWER CHOLESTEROL)
     Route: 065
     Dates: start: 20251003
  3. ATORVASTATIN [Suspect]
     Active Substance: ATORVASTATIN
     Dosage: 20 MILLIGRAM, PM (TAKE ONE DAILY IN THE EVENING TO LOWER CHOLESTEROL)
     Route: 065
     Dates: start: 20251003
  4. ATORVASTATIN [Suspect]
     Active Substance: ATORVASTATIN
     Dosage: 20 MILLIGRAM, PM (TAKE ONE DAILY IN THE EVENING TO LOWER CHOLESTEROL)
     Dates: start: 20251003
  5. Alginate [Concomitant]
     Indication: Ill-defined disorder
     Dosage: UNK, QID (10ML-20ML 4 TIMES/DAY)
     Dates: start: 20250717
  6. Alginate [Concomitant]
     Dosage: UNK, QID (10ML-20ML 4 TIMES/DAY)
     Route: 065
     Dates: start: 20250717
  7. Alginate [Concomitant]
     Dosage: UNK, QID (10ML-20ML 4 TIMES/DAY)
     Route: 065
     Dates: start: 20250717
  8. Alginate [Concomitant]
     Dosage: UNK, QID (10ML-20ML 4 TIMES/DAY)
     Dates: start: 20250717
  9. BECLOMETHASONE DIPROPIONATE [Concomitant]
     Active Substance: BECLOMETHASONE DIPROPIONATE
     Indication: Ill-defined disorder
     Dosage: UNK, BID (TWO PUFFS TWICE DAILY)
     Dates: start: 20250717, end: 20251003
  10. BECLOMETHASONE DIPROPIONATE [Concomitant]
     Active Substance: BECLOMETHASONE DIPROPIONATE
     Dosage: UNK, BID (TWO PUFFS TWICE DAILY)
     Route: 065
     Dates: start: 20250717, end: 20251003
  11. BECLOMETHASONE DIPROPIONATE [Concomitant]
     Active Substance: BECLOMETHASONE DIPROPIONATE
     Dosage: UNK, BID (TWO PUFFS TWICE DAILY)
     Route: 065
     Dates: start: 20250717, end: 20251003
  12. BECLOMETHASONE DIPROPIONATE [Concomitant]
     Active Substance: BECLOMETHASONE DIPROPIONATE
     Dosage: UNK, BID (TWO PUFFS TWICE DAILY)
     Dates: start: 20250717, end: 20251003
  13. CARBOXYMETHYLCELLULOSE [Concomitant]
     Active Substance: CARBOXYMETHYLCELLULOSE
     Indication: Ill-defined disorder
     Dosage: UNK, QD (APPLY 2-3 TIMES A DAY)
     Dates: start: 20250717
  14. CARBOXYMETHYLCELLULOSE [Concomitant]
     Active Substance: CARBOXYMETHYLCELLULOSE
     Dosage: UNK, QD (APPLY 2-3 TIMES A DAY)
     Route: 065
     Dates: start: 20250717
  15. CARBOXYMETHYLCELLULOSE [Concomitant]
     Active Substance: CARBOXYMETHYLCELLULOSE
     Dosage: UNK, QD (APPLY 2-3 TIMES A DAY)
     Route: 065
     Dates: start: 20250717
  16. CARBOXYMETHYLCELLULOSE [Concomitant]
     Active Substance: CARBOXYMETHYLCELLULOSE
     Dosage: UNK, QD (APPLY 2-3 TIMES A DAY)
     Dates: start: 20250717
  17. FEXOFENADINE [Concomitant]
     Active Substance: FEXOFENADINE HYDROCHLORIDE
     Indication: Ill-defined disorder
     Dosage: 1 DOSAGE FORM, QD (TAKE ONE DAILY TO SUPPRESS ALLERGIC SYMPTOMS)
     Dates: start: 20250717
  18. FEXOFENADINE [Concomitant]
     Active Substance: FEXOFENADINE HYDROCHLORIDE
     Dosage: 1 DOSAGE FORM, QD (TAKE ONE DAILY TO SUPPRESS ALLERGIC SYMPTOMS)
     Route: 065
     Dates: start: 20250717
  19. FEXOFENADINE [Concomitant]
     Active Substance: FEXOFENADINE HYDROCHLORIDE
     Dosage: 1 DOSAGE FORM, QD (TAKE ONE DAILY TO SUPPRESS ALLERGIC SYMPTOMS)
     Route: 065
     Dates: start: 20250717
  20. FEXOFENADINE [Concomitant]
     Active Substance: FEXOFENADINE HYDROCHLORIDE
     Dosage: 1 DOSAGE FORM, QD (TAKE ONE DAILY TO SUPPRESS ALLERGIC SYMPTOMS)
     Dates: start: 20250717
  21. BECLOMETHASONE\FORMOTEROL [Concomitant]
     Active Substance: BECLOMETHASONE\FORMOTEROL
     Indication: Ill-defined disorder
     Dosage: UNK, BID (INHALE TWO PUFFS TWICE DAILY)
     Dates: start: 20250717
  22. BECLOMETHASONE\FORMOTEROL [Concomitant]
     Active Substance: BECLOMETHASONE\FORMOTEROL
     Dosage: UNK, BID (INHALE TWO PUFFS TWICE DAILY)
     Route: 055
     Dates: start: 20250717
  23. BECLOMETHASONE\FORMOTEROL [Concomitant]
     Active Substance: BECLOMETHASONE\FORMOTEROL
     Dosage: UNK, BID (INHALE TWO PUFFS TWICE DAILY)
     Route: 055
     Dates: start: 20250717
  24. BECLOMETHASONE\FORMOTEROL [Concomitant]
     Active Substance: BECLOMETHASONE\FORMOTEROL
     Dosage: UNK, BID (INHALE TWO PUFFS TWICE DAILY)
     Dates: start: 20250717
  25. FUROSEMIDE [Concomitant]
     Active Substance: FUROSEMIDE
     Indication: Ill-defined disorder
     Dosage: 1 DOSAGE FORM, AM (TAKE ONE EACH MORNING)
     Dates: start: 20250717
  26. FUROSEMIDE [Concomitant]
     Active Substance: FUROSEMIDE
     Dosage: 1 DOSAGE FORM, AM (TAKE ONE EACH MORNING)
     Route: 065
     Dates: start: 20250717
  27. FUROSEMIDE [Concomitant]
     Active Substance: FUROSEMIDE
     Dosage: 1 DOSAGE FORM, AM (TAKE ONE EACH MORNING)
     Route: 065
     Dates: start: 20250717
  28. FUROSEMIDE [Concomitant]
     Active Substance: FUROSEMIDE
     Dosage: 1 DOSAGE FORM, AM (TAKE ONE EACH MORNING)
     Dates: start: 20250717
  29. LOSARTAN [Concomitant]
     Active Substance: LOSARTAN
     Indication: Ill-defined disorder
     Dosage: 1 DOSAGE FORM, QD (TAKE ONE DAILY)
     Dates: start: 20250717
  30. LOSARTAN [Concomitant]
     Active Substance: LOSARTAN
     Dosage: 1 DOSAGE FORM, QD (TAKE ONE DAILY)
     Route: 065
     Dates: start: 20250717
  31. LOSARTAN [Concomitant]
     Active Substance: LOSARTAN
     Dosage: 1 DOSAGE FORM, QD (TAKE ONE DAILY)
     Route: 065
     Dates: start: 20250717
  32. LOSARTAN [Concomitant]
     Active Substance: LOSARTAN
     Dosage: 1 DOSAGE FORM, QD (TAKE ONE DAILY)
     Dates: start: 20250717
  33. MONTELUKAST [Concomitant]
     Active Substance: MONTELUKAST
     Indication: Ill-defined disorder
     Dosage: 1 DOSAGE FORM, PM (TAKE ONE AT NIGHT)
     Dates: start: 20250717
  34. MONTELUKAST [Concomitant]
     Active Substance: MONTELUKAST
     Dosage: 1 DOSAGE FORM, PM (TAKE ONE AT NIGHT)
     Route: 065
     Dates: start: 20250717
  35. MONTELUKAST [Concomitant]
     Active Substance: MONTELUKAST
     Dosage: 1 DOSAGE FORM, PM (TAKE ONE AT NIGHT)
     Route: 065
     Dates: start: 20250717
  36. MONTELUKAST [Concomitant]
     Active Substance: MONTELUKAST
     Dosage: 1 DOSAGE FORM, PM (TAKE ONE AT NIGHT)
     Dates: start: 20250717
  37. ALBUTEROL [Concomitant]
     Active Substance: ALBUTEROL
     Indication: Ill-defined disorder
     Dosage: 2 DOSAGE FORM, PRN (INHALE 2 DOSES AS NEEDED)
  38. ALBUTEROL [Concomitant]
     Active Substance: ALBUTEROL
     Dosage: 2 DOSAGE FORM, PRN (INHALE 2 DOSES AS NEEDED)
     Route: 055
  39. ALBUTEROL [Concomitant]
     Active Substance: ALBUTEROL
     Dosage: 2 DOSAGE FORM, PRN (INHALE 2 DOSES AS NEEDED)
     Route: 055
  40. ALBUTEROL [Concomitant]
     Active Substance: ALBUTEROL
     Dosage: 2 DOSAGE FORM, PRN (INHALE 2 DOSES AS NEEDED)
  41. TAMSULOSIN HYDROCHLORIDE [Concomitant]
     Active Substance: TAMSULOSIN HYDROCHLORIDE
     Indication: Ill-defined disorder
     Dosage: 1 DOSAGE FORM, QD (ONE DAILY )
     Dates: start: 20250717
  42. TAMSULOSIN HYDROCHLORIDE [Concomitant]
     Active Substance: TAMSULOSIN HYDROCHLORIDE
     Dosage: 1 DOSAGE FORM, QD (ONE DAILY )
     Route: 065
     Dates: start: 20250717
  43. TAMSULOSIN HYDROCHLORIDE [Concomitant]
     Active Substance: TAMSULOSIN HYDROCHLORIDE
     Dosage: 1 DOSAGE FORM, QD (ONE DAILY )
     Route: 065
     Dates: start: 20250717
  44. TAMSULOSIN HYDROCHLORIDE [Concomitant]
     Active Substance: TAMSULOSIN HYDROCHLORIDE
     Dosage: 1 DOSAGE FORM, QD (ONE DAILY )
     Dates: start: 20250717
  45. FLUTICASONE FUROATE [Concomitant]
     Active Substance: FLUTICASONE FUROATE
     Indication: Ill-defined disorder
     Dosage: UNK, QD (TWO SPRAYS INTO EACH NOSTRIL ONCE A DAY. WHEN C...)
     Dates: start: 20251003
  46. FLUTICASONE FUROATE [Concomitant]
     Active Substance: FLUTICASONE FUROATE
     Dosage: UNK, QD (TWO SPRAYS INTO EACH NOSTRIL ONCE A DAY. WHEN C...)
     Route: 065
     Dates: start: 20251003
  47. FLUTICASONE FUROATE [Concomitant]
     Active Substance: FLUTICASONE FUROATE
     Dosage: UNK, QD (TWO SPRAYS INTO EACH NOSTRIL ONCE A DAY. WHEN C...)
     Route: 065
     Dates: start: 20251003
  48. FLUTICASONE FUROATE [Concomitant]
     Active Substance: FLUTICASONE FUROATE
     Dosage: UNK, QD (TWO SPRAYS INTO EACH NOSTRIL ONCE A DAY. WHEN C...)
     Dates: start: 20251003

REACTIONS (2)
  - Joint stiffness [Recovered/Resolved]
  - Arthralgia [Recovered/Resolved]
